FAERS Safety Report 9323913 (Version 2)
Quarter: 2013Q2

REPORT INFORMATION
  Report Type: Spontaneous
  Country: US (occurrence: US)
  Receive Date: 20130603
  Receipt Date: 20130624
  Transmission Date: 20140414
  Serious: Yes (Other)
  Sender: FDA-Public Use
  Company Number: US-PFIZER INC-2013163386

PATIENT
  Age: 85 Year
  Sex: Female
  Weight: 88.44 kg

DRUGS (1)
  1. VFEND [Suspect]
     Indication: PULMONARY MYCOSIS
     Dosage: 100 MG, 2X/DAY
     Dates: start: 2013

REACTIONS (3)
  - Ankle fracture [Unknown]
  - Nervous system disorder [Unknown]
  - Fall [Unknown]
